FAERS Safety Report 5901964-7 (Version None)
Quarter: 2008Q3

REPORT INFORMATION
  Report Type: 
  Country: None (occurrence: None)
  Receive Date: 20080925
  Receipt Date: 20080924
  Transmission Date: 20090109
  Serious: Yes (Hospitalization)
  Sender: FDA-Public Use
  Company Number: 2008SP018757

PATIENT
  Age: 36 Year
  Sex: Male
  Weight: 114.76 kg

DRUGS (14)
  1. TEMOZOLOMIDE [Suspect]
     Indication: METASTATIC MALIGNANT MELANOMA
     Dosage: 100 MG;QD;PO, 60 MG;QD;PO,15 MG;QD;PO
     Route: 048
     Dates: start: 20080818, end: 20080914
  2. TEMOZOLOMIDE [Suspect]
     Indication: METASTATIC MALIGNANT MELANOMA
     Dosage: 100 MG;QD;PO, 60 MG;QD;PO,15 MG;QD;PO
     Route: 048
     Dates: start: 20080818, end: 20080914
  3. TEMOZOLOMIDE [Suspect]
     Indication: METASTATIC MALIGNANT MELANOMA
     Dosage: 100 MG;QD;PO, 60 MG;QD;PO,15 MG;QD;PO
     Route: 048
     Dates: start: 20080818, end: 20080914
  4. TEMOZOLOMIDE [Suspect]
  5. TEMOZOLOMIDE [Suspect]
  6. DECITABINE [Suspect]
     Indication: METASTATIC MALIGNANT MELANOMA
     Dosage: 9 MG, 9 MG
     Dates: start: 20080811, end: 20080815
  7. DECITABINE [Suspect]
     Indication: METASTATIC MALIGNANT MELANOMA
     Dosage: 9 MG, 9 MG
     Dates: start: 20080818, end: 20080822
  8. OXYCONTIN [Concomitant]
  9. DECADRON [Concomitant]
  10. ZOFRAN [Concomitant]
  11. LYRICA [Concomitant]
  12. FIORICET [Concomitant]
  13. OXYCONTIN [Concomitant]
  14. GABAPENTIN [Concomitant]

REACTIONS (9)
  - ANOREXIA [None]
  - ASTHENIA [None]
  - COUGH [None]
  - FAILURE TO THRIVE [None]
  - FLANK PAIN [None]
  - MALIGNANT NEOPLASM PROGRESSION [None]
  - METASTATIC MALIGNANT MELANOMA [None]
  - NAUSEA [None]
  - WEIGHT DECREASED [None]
